FAERS Safety Report 8958430 (Version 1)
Quarter: 2012Q4

REPORT INFORMATION
  Report Type: Spontaneous
  Country: US (occurrence: None)
  Receive Date: 20121205
  Receipt Date: 20121205
  Transmission Date: 20130627
  Serious: Yes (Hospitalization)
  Sender: FDA-Public Use
  Company Number: None

PATIENT
  Age: 40 Year
  Sex: Female
  Weight: 79.83 kg

DRUGS (9)
  1. TOCILIZUMAB [Suspect]
  2. INSULIN GLARGINE [Concomitant]
  3. CARDIZEM [Concomitant]
  4. NEURONTIN [Concomitant]
  5. ZOLOFT [Concomitant]
  6. NORCO [Concomitant]
  7. KAYECALATE [Concomitant]
  8. RENVELA [Concomitant]
  9. SENSIPAR [Concomitant]

REACTIONS (10)
  - Asthenia [None]
  - Abdominal pain [None]
  - Nausea [None]
  - Vomiting [None]
  - Sepsis [None]
  - Hyperkalaemia [None]
  - Blood glucose increased [None]
  - Ventricular fibrillation [None]
  - Metabolic acidosis [None]
  - Cardiac arrest [None]
